FAERS Safety Report 24924784 (Version 1)
Quarter: 2025Q1

REPORT INFORMATION
  Report Type: Report from Study
  Country: US (occurrence: US)
  Receive Date: 20250204
  Receipt Date: 20250204
  Transmission Date: 20250408
  Serious: No
  Sender: EXELIXIS
  Company Number: US-EXELIXIS-CABO-24075819

PATIENT
  Age: 72 Year
  Sex: Male

DRUGS (6)
  1. CABOMETYX [Suspect]
     Active Substance: CABOZANTINIB S-MALATE
     Indication: Neuroendocrine tumour
     Dosage: 60 MG, QD
     Dates: start: 20240313, end: 20240507
  2. LOSARTAN [Concomitant]
     Active Substance: LOSARTAN
  3. AMLODIPINE [Concomitant]
     Active Substance: AMLODIPINE BESYLATE
  4. METOPROLOL [Concomitant]
     Active Substance: METOPROLOL
  5. LOPERAMIDE [Concomitant]
     Active Substance: LOPERAMIDE
  6. COLACE [Concomitant]
     Active Substance: DOCUSATE SODIUM

REACTIONS (13)
  - Blood pressure increased [Recovering/Resolving]
  - Taste disorder [Not Recovered/Not Resolved]
  - Palmar-plantar erythrodysaesthesia syndrome [Recovering/Resolving]
  - Diarrhoea [Recovered/Resolved]
  - Decreased appetite [Not Recovered/Not Resolved]
  - Weight decreased [Not Recovered/Not Resolved]
  - Fatigue [Not Recovered/Not Resolved]
  - Dry skin [Not Recovered/Not Resolved]
  - Constipation [Recovered/Resolved]
  - Nausea [Not Recovered/Not Resolved]
  - Gingival discomfort [Not Recovered/Not Resolved]
  - Blood glucose increased [Not Recovered/Not Resolved]
  - Off label use [Unknown]

NARRATIVE: CASE EVENT DATE: 20240402
